FAERS Safety Report 14223714 (Version 4)
Quarter: 2019Q1

REPORT INFORMATION
  Report Type: Spontaneous
  Country: SK (occurrence: SK)
  Receive Date: 20171125
  Receipt Date: 20190329
  Transmission Date: 20190417
  Serious: Yes (Other)
  Sender: FDA-Public Use
  Company Number: SK-ACCORD-061395

PATIENT
  Age: 60 Year
  Sex: Male

DRUGS (5)
  1. VINCRISTINE [Suspect]
     Active Substance: VINCRISTINE
     Indication: MANTLE CELL LYMPHOMA
     Dosage: RECEIVED ON 2012
     Dates: start: 201507, end: 201509
  2. PREDNISONE. [Suspect]
     Active Substance: PREDNISONE
     Indication: MANTLE CELL LYMPHOMA
     Dosage: RECEIVED IN 2012
     Dates: start: 201507, end: 201509
  3. ETOPOSIDE. [Suspect]
     Active Substance: ETOPOSIDE
     Indication: MANTLE CELL LYMPHOMA
     Dates: start: 201507, end: 201509
  4. CYCLOPHOSPHAMIDE/CYCLOPHOSPHAMIDE MONOHYDRATE [Suspect]
     Active Substance: CYCLOPHOSPHAMIDE
     Indication: MANTLE CELL LYMPHOMA
     Dosage: RECEIVED IN 2012
     Dates: start: 201507, end: 201509
  5. RITUXIMAB. [Suspect]
     Active Substance: RITUXIMAB
     Indication: MANTLE CELL LYMPHOMA
     Dosage: ALSO RECEIVED IN 2012
     Dates: start: 201507, end: 201509

REACTIONS (12)
  - Constipation [Unknown]
  - Angina pectoris [Unknown]
  - Palpitations [None]
  - Skin haemorrhage [None]
  - Tonsillitis [Unknown]
  - Mucosal haemorrhage [None]
  - Pallor [None]
  - Stomatitis [Unknown]
  - Bowel movement irregularity [None]
  - Sinusitis [Unknown]
  - Dysuria [None]
  - Off label use [Unknown]

NARRATIVE: CASE EVENT DATE: 2015
